FAERS Safety Report 13671156 (Version 1)
Quarter: 2017Q2

REPORT INFORMATION
  Report Type: Spontaneous
  Country: US (occurrence: US)
  Receive Date: 20170620
  Receipt Date: 20170620
  Transmission Date: 20170830
  Serious: No
  Sender: FDA-Public Use
  Company Number: US-ROCHE-1108908

PATIENT
  Age: 79 Year
  Sex: Female
  Weight: 65.83 kg

DRUGS (1)
  1. XELODA [Suspect]
     Active Substance: CAPECITABINE
     Indication: HEAD AND NECK CANCER
     Route: 048
     Dates: start: 20120618, end: 20120716

REACTIONS (2)
  - Hypophagia [Unknown]
  - Mucosal inflammation [Recovered/Resolved]

NARRATIVE: CASE EVENT DATE: 20120716
